FAERS Safety Report 18815636 (Version 2)
Quarter: 2021Q1

REPORT INFORMATION
  Report Type: Spontaneous
  Country: US (occurrence: US)
  Receive Date: 20210201
  Receipt Date: 20210303
  Transmission Date: 20210419
  Serious: Yes (Other)
  Sender: FDA-Public Use
  Company Number: US-GLAXOSMITHKLINE-US2021GSK023329

PATIENT
  Sex: Male

DRUGS (4)
  1. ZANTAC [Suspect]
     Active Substance: RANITIDINE HYDROCHLORIDE
     Indication: AMNESIA
     Dosage: 150 MG, QD
     Dates: start: 200001, end: 202001
  2. RANITIDINE. [Suspect]
     Active Substance: RANITIDINE
     Indication: AMNESIA
     Dosage: 150 MG, QD
     Dates: start: 200001, end: 202001
  3. ZANTAC [Suspect]
     Active Substance: RANITIDINE HYDROCHLORIDE
     Indication: AMNESIA
     Dosage: 150 MG, QD
     Dates: start: 200001, end: 202001
  4. RANITIDINE. [Suspect]
     Active Substance: RANITIDINE
     Indication: AMNESIA
     Dosage: 150 MG, QD
     Dates: start: 200001, end: 202001

REACTIONS (1)
  - Prostate cancer [Unknown]
